FAERS Safety Report 15650068 (Version 3)
Quarter: 2018Q4

REPORT INFORMATION
  Report Type: Report from Study
  Country: FR (occurrence: FR)
  Receive Date: 20181123
  Receipt Date: 20181210
  Transmission Date: 20190205
  Serious: Yes (Hospitalization)
  Sender: FDA-Public Use
  Company Number: FR-IPSEN BIOPHARMACEUTICALS, INC.-2018-07948

PATIENT
  Age: 13 Year
  Sex: Male
  Weight: 30 kg

DRUGS (10)
  1. INCRELEX [Suspect]
     Active Substance: MECASERMIN
     Route: 058
     Dates: start: 20151229
  2. RUBOZINC [Concomitant]
     Active Substance: ZINC GLUCONATE
     Indication: ACNE
     Dosage: I CAPSULE 1 DAY
     Route: 048
  3. INCRELEX [Suspect]
     Active Substance: MECASERMIN
     Route: 058
     Dates: start: 201502, end: 20151228
  4. GLUCAGON. [Concomitant]
     Active Substance: GLUCAGON
     Dosage: NOT REPORTED
  5. PARACETAMOL [Concomitant]
     Active Substance: ACETAMINOPHEN
     Dosage: NOT REPORTED
  6. AVAMYS [Concomitant]
     Active Substance: FLUTICASONE FUROATE
     Indication: HYPERSENSITIVITY
     Dosage: 2 SPRAY/DAY; LOCAL
  7. TARDYFERON [Concomitant]
     Active Substance: FERROUS SULFATE
     Indication: ANAEMIA
     Dosage: 5 MG/DAY
     Route: 048
  8. INCRELEX [Suspect]
     Active Substance: MECASERMIN
     Indication: PRODUCT USED FOR UNKNOWN INDICATION
     Dosage: 0.04 MG/KG
     Route: 058
     Dates: start: 20141018
  9. SPECIAFOLDINE [Concomitant]
     Active Substance: FOLIC ACID
     Indication: ANAEMIA
     Dosage: 5 MG/ML
     Route: 048
  10. AERIUS (DESLORATADINE) [Concomitant]
     Active Substance: DESLORATADINE
     Indication: HYPERSENSITIVITY
     Dosage: 5 ML/DAY
     Route: 048

REACTIONS (4)
  - Constipation [Recovered/Resolved]
  - Hypoglycaemia [Recovered/Resolved]
  - Sickle cell anaemia with crisis [Recovered/Resolved]
  - Sickle cell anaemia with crisis [Recovered/Resolved]

NARRATIVE: CASE EVENT DATE: 20141201
